FAERS Safety Report 15672325 (Version 3)
Quarter: 2019Q2

REPORT INFORMATION
  Report Type: Report from Study
  Country: US (occurrence: US)
  Receive Date: 20181129
  Receipt Date: 20190404
  Transmission Date: 20190711
  Serious: Yes (Other)
  Sender: FDA-Public Use
  Company Number: US-TESARO-US-2017TSO02424

PATIENT
  Age: 79 Year
  Sex: Female

DRUGS (7)
  1. ZEJULA [Suspect]
     Active Substance: NIRAPARIB
     Indication: OVARIAN CANCER
     Dosage: 300 MG, QD
     Route: 048
     Dates: start: 20170805
  2. ZEJULA [Suspect]
     Active Substance: NIRAPARIB
     Dosage: 100 MG, QD
     Route: 048
     Dates: start: 20171211, end: 20180608
  3. TYLENOL [Concomitant]
     Active Substance: ACETAMINOPHEN
     Indication: HEADACHE
     Dosage: UNK
  4. ASPIRIN. [Concomitant]
     Active Substance: ASPIRIN
     Indication: PRODUCT USED FOR UNKNOWN INDICATION
     Dosage: UNK
     Route: 065
  5. ZEJULA [Suspect]
     Active Substance: NIRAPARIB
     Dosage: 200 MG, QD
     Route: 048
     Dates: start: 20180623
  6. LOSARTAN. [Concomitant]
     Active Substance: LOSARTAN
     Indication: PRODUCT USED FOR UNKNOWN INDICATION
     Dosage: UNK
     Route: 065
  7. ZEJULA [Suspect]
     Active Substance: NIRAPARIB
     Dosage: 100 MG, QD
     Route: 048
     Dates: start: 20170804, end: 20180605

REACTIONS (11)
  - Heart rate increased [Not Recovered/Not Resolved]
  - Stomatitis [Unknown]
  - Anaemia [Unknown]
  - Nausea [Not Recovered/Not Resolved]
  - Laboratory test abnormal [Unknown]
  - Dizziness [Unknown]
  - Decreased appetite [Not Recovered/Not Resolved]
  - Palpitations [Unknown]
  - Asthenia [Recovering/Resolving]
  - Fatigue [Recovering/Resolving]
  - Dry mouth [Not Recovered/Not Resolved]

NARRATIVE: CASE EVENT DATE: 20180527
